FAERS Safety Report 25072921 (Version 1)
Quarter: 2025Q1

REPORT INFORMATION
  Report Type: Spontaneous
  Country: ES (occurrence: ES)
  Receive Date: 20250313
  Receipt Date: 20250313
  Transmission Date: 20250408
  Serious: Yes (Hospitalization)
  Sender: RANBAXY
  Company Number: ES-SUN PHARMACEUTICAL INDUSTRIES LTD-2025RR-499234

PATIENT
  Age: 89 Year
  Sex: Male

DRUGS (5)
  1. AZITHROMYCIN [Interacting]
     Active Substance: AZITHROMYCIN
     Indication: Respiratory tract infection
     Dosage: 500 MILLIGRAM, DAILY
     Route: 048
     Dates: start: 20241215, end: 20241217
  2. AMOXICILLIN\CLAVULANIC ACID [Interacting]
     Active Substance: AMOXICILLIN\CLAVULANIC ACID
     Indication: Respiratory tract infection
     Dosage: 1 DOSAGE FORM, BID
     Route: 048
     Dates: start: 20241217, end: 20241229
  3. SINTROM [Interacting]
     Active Substance: ACENOCOUMAROL
     Indication: Atrial fibrillation
     Dosage: 0.5 MILLIGRAM, DAILY
     Route: 048
     Dates: start: 20241219, end: 20241229
  4. SINTROM [Interacting]
     Active Substance: ACENOCOUMAROL
     Route: 048
     Dates: start: 20170313, end: 20241218
  5. PREDNISONE [Concomitant]
     Active Substance: PREDNISONE
     Indication: Respiratory tract infection
     Dosage: 30 MILLIGRAM, DAILY
     Route: 048
     Dates: start: 20241226, end: 20241229

REACTIONS (1)
  - Abdominal wall haematoma [Recovering/Resolving]

NARRATIVE: CASE EVENT DATE: 20241227
